FAERS Safety Report 25634662 (Version 1)
Quarter: 2025Q3

REPORT INFORMATION
  Report Type: Spontaneous
  Country: EU (occurrence: EU)
  Receive Date: 20250801
  Receipt Date: 20250801
  Transmission Date: 20251021
  Serious: Yes (Other)
  Sender: MEDEXUS PHARMA
  Company Number: EU-MEDEXUS PHARMA, INC.-2025MED00225

PATIENT
  Sex: Male

DRUGS (1)
  1. METHOTREXATE [Suspect]
     Active Substance: METHOTREXATE

REACTIONS (2)
  - Bone disorder [Unknown]
  - Fracture [Unknown]
